FAERS Safety Report 5358154-9 (Version None)
Quarter: 2007Q2

REPORT INFORMATION
  Report Type: 
  Country: None (occurrence: None)
  Receive Date: 20070530
  Receipt Date: 20061018
  Transmission Date: 20071010
  Serious: Yes (Other)
  Sender: FDA-Public Use
  Company Number: US200605005423

PATIENT
  Age: 41 Year
  Sex: Male
  Weight: 131.5 kg

DRUGS (3)
  1. ZYPREXA [Suspect]
     Indication: DEPRESSION
     Dosage: 5 MG
     Dates: start: 20000101, end: 20040101
  2. FLUOXETINE [Concomitant]
  3. ATENOLOL [Concomitant]

REACTIONS (5)
  - BLOOD CHOLESTEROL ABNORMAL [None]
  - BLOOD TRIGLYCERIDES INCREASED [None]
  - DIABETES MELLITUS [None]
  - METABOLIC DISORDER [None]
  - PANCREATITIS [None]
